FAERS Safety Report 17454521 (Version 1)
Quarter: 2020Q1

REPORT INFORMATION
  Report Type: Spontaneous
  Country: US (occurrence: US)
  Receive Date: 20200223
  Receipt Date: 20200223
  Transmission Date: 20200409
  Serious: No
  Sender: FDA-Public Use
  Company Number: None

PATIENT

DRUGS (1)
  1. PURITO CENTELLA GREEN LEVEL SAFE SUN [Suspect]
     Active Substance: DIETHYLAMINO HYDROXYBENZOYL HEXYL BENZOATE\ETHYLHEXYL TRIAZONE
     Indication: PROPHYLAXIS AGAINST SOLAR RADIATION
     Dates: start: 20200220, end: 20200223

REACTIONS (3)
  - Product formulation issue [None]
  - Product use complaint [None]
  - Product use in unapproved indication [None]

NARRATIVE: CASE EVENT DATE: 20200223
